FAERS Safety Report 12310446 (Version 1)
Quarter: 2016Q2

REPORT INFORMATION
  Report Type: Spontaneous
  Country: US (occurrence: None)
  Receive Date: 20160426
  Receipt Date: 20160426
  Transmission Date: 20160815
  Serious: Yes (Other)
  Sender: FDA-Public Use
  Company Number: None

PATIENT
  Age: 68 Year
  Sex: Female
  Weight: 88 kg

DRUGS (16)
  1. LEVOFLOXACIN 500 MG TABLET, 500 MG MACLEODS PHARMA [Suspect]
     Active Substance: LEVOFLOXACIN
     Indication: RESPIRATORY TRACT INFECTION
     Route: 048
     Dates: start: 20160222, end: 20160228
  2. METFORMIN [Concomitant]
     Active Substance: METFORMIN HYDROCHLORIDE
  3. CICLOPIROX OLAMINE CREAM [Concomitant]
     Active Substance: CICLOPIROX OLAMINE
  4. CALCIUM PLUS VITAMIN D [Concomitant]
     Active Substance: CALCIUM\VITAMIN D
  5. POT CHLORIDE [Concomitant]
     Active Substance: POTASSIUM CHLORIDE
  6. AZELASTINE HYDROCHLORIDE. [Concomitant]
     Active Substance: AZELASTINE HYDROCHLORIDE
  7. TORSEMIDE. [Concomitant]
     Active Substance: TORSEMIDE
  8. GLUCOSAMIDE CHONDROITIN PLUS [Concomitant]
  9. CHROMIUM PICOLINATE [Concomitant]
     Active Substance: CHROMIUM PICOLINATE
  10. OMEPRAZOLE. [Concomitant]
     Active Substance: OMEPRAZOLE
  11. BABY ASPIRIN [Concomitant]
     Active Substance: ASPIRIN
  12. MATURE MULTI-VITAMIN A-Z1 [Concomitant]
  13. FLAX  SEED [Concomitant]
     Active Substance: FLAX SEED
  14. BETA-CAROTENE [Concomitant]
  15. VITAMIN D3 [Concomitant]
     Active Substance: CHOLECALCIFEROL
  16. VITAMIN B COMPLEX [Concomitant]
     Active Substance: CYANOCOBALAMIN\DEXPANTHENOL\NIACINAMIDE\PYRIDOXINE HYDROCHLORIDE\RIBOFLAVIN 5^-PHOSPHATE SODIUM\THIAMINE HYDROCHLORIDE\VITAMIN B COMPLEX

REACTIONS (10)
  - Tendon pain [None]
  - Peripheral swelling [None]
  - Gait disturbance [None]
  - Joint stiffness [None]
  - Arthritis [None]
  - Activities of daily living impaired [None]
  - Intentional product use issue [None]
  - Myositis [None]
  - Myalgia [None]
  - Arthralgia [None]

NARRATIVE: CASE EVENT DATE: 20160222
